FAERS Safety Report 5207569-8 (Version None)
Quarter: 2006Q4

REPORT INFORMATION
  Report Type: 
  Country: None (occurrence: None)
  Receive Date: 20061030
  Receipt Date: 20060804
  Transmission Date: 20070319
  Serious: No
  Sender: FDA-Public Use
  Company Number: 255848

PATIENT
  Age: 57 Year
  Sex: Female

DRUGS (8)
  1. LEVEMIR [Suspect]
     Indication: DIABETES MELLITUS INSULIN-DEPENDENT
     Dosage: 34 IU QD SUBCUTANEOUS
     Route: 058
     Dates: start: 20060721
  2. NOVOFINE(R) (NEEDLE) [Concomitant]
  3. HUMALOG /00030501/ (INSULIN) [Concomitant]
  4. ATENOLOL [Concomitant]
  5. LISINOPRIL [Concomitant]
  6. LASIX [Concomitant]
  7. SYNTHROID [Concomitant]
  8. LIPITOR [Concomitant]

REACTIONS (2)
  - INJECTION SITE PRURITUS [None]
  - INJECTION SITE SWELLING [None]
